FAERS Safety Report 8996141 (Version 2)
Quarter: 2013Q1

REPORT INFORMATION
  Report Type: Spontaneous
  Country: DE (occurrence: DE)
  Receive Date: 20130103
  Receipt Date: 20130318
  Transmission Date: 20140127
  Serious: Yes (Other)
  Sender: FDA-Public Use
  Company Number: DE-JNJFOC-20130100745

PATIENT
  Age: 67 Year
  Sex: 0
  Weight: 80 kg

DRUGS (5)
  1. XARELTO [Suspect]
     Indication: CEREBROVASCULAR ACCIDENT PROPHYLAXIS
     Route: 048
     Dates: start: 201205, end: 201211
  2. XARELTO [Suspect]
     Indication: ATRIAL FIBRILLATION
     Route: 048
     Dates: start: 201205, end: 201211
  3. CONCOR [Concomitant]
     Indication: HYPERTENSION
     Route: 048
  4. HYDROCHLOROTHIAZIDE [Concomitant]
     Indication: HYPERTENSION
     Route: 048
  5. TAMBOCOR [Concomitant]
     Indication: ATRIAL FIBRILLATION
     Dosage: 0.5 DOSE, TWICE A DAY (0.5-0-0.5)
     Route: 048

REACTIONS (1)
  - Hepatitis cholestatic [Recovered/Resolved]
